FAERS Safety Report 5282162-X (Version None)
Quarter: 2007Q1

REPORT INFORMATION
  Report Type: 
  Country: None (occurrence: None)
  Receive Date: 20070330
  Receipt Date: 20070320
  Transmission Date: 20070707
  Serious: Yes (Life-Threatening, Hospitalization, Other)
  Sender: FDA-Public Use
  Company Number: US-PFIZER INC-2007008026

PATIENT
  Age: 51 Year
  Sex: Male

DRUGS (6)
  1. PREGABALIN [Suspect]
     Indication: EPILEPSY
     Route: 048
     Dates: start: 20061220, end: 20061225
  2. LEVETIRACETAM [Concomitant]
  3. CALCIUM WITH VITAMIN D [Concomitant]
  4. SERTRALINE [Concomitant]
  5. LAMOTRIGINE [Concomitant]
  6. ASPIRIN [Concomitant]

REACTIONS (2)
  - RHABDOMYOLYSIS [None]
  - STATUS EPILEPTICUS [None]
